FAERS Safety Report 7399779-9 (Version None)
Quarter: 2011Q2

REPORT INFORMATION
  Report Type: 
  Country: None (occurrence: None)
  Receive Date: 20110407
  Receipt Date: 20110323
  Transmission Date: 20111010
  Serious: Yes (Hospitalization)
  Sender: FDA-Public Use
  Company Number: JP-JNJFOC-20101204518

PATIENT
  Age: 44 Year
  Sex: Male
  Weight: 50 kg

DRUGS (7)
  1. REMICADE [Suspect]
     Route: 042
  2. REMICADE [Suspect]
     Indication: CROHN'S DISEASE
     Route: 042
  3. REMICADE [Suspect]
     Route: 042
  4. REMICADE [Suspect]
     Route: 042
  5. REMICADE [Suspect]
     Dosage: TOTAL 6 INFUSIONS
     Route: 042
  6. PENTASA [Concomitant]
     Indication: CROHN'S DISEASE
     Route: 048
  7. REMICADE [Suspect]
     Route: 042

REACTIONS (2)
  - ILEUS [None]
  - ILEAL STENOSIS [None]
